FAERS Safety Report 8353684-X (Version None)
Quarter: 2012Q2

REPORT INFORMATION
  Report Type: 
  Country: None (occurrence: None)
  Receive Date: 20120511
  Receipt Date: 20120503
  Transmission Date: 20120825
  Serious: Yes (Other)
  Sender: FDA-Public Use
  Company Number: GB-ASTRAZENECA-2012SE28807

PATIENT
  Sex: Male

DRUGS (2)
  1. SEROQUEL [Suspect]
     Indication: BIPOLAR DISORDER
     Route: 048
     Dates: start: 20100101, end: 20120301
  2. SEROQUEL [Suspect]
     Route: 048
     Dates: start: 20120101

REACTIONS (2)
  - BASAL CELL CARCINOMA [None]
  - VOMITING [None]
